FAERS Safety Report 8158374-4 (Version None)
Quarter: 2012Q1

REPORT INFORMATION
  Report Type: 
  Country: None (occurrence: None)
  Receive Date: 20120223
  Receipt Date: 20120216
  Transmission Date: 20120608
  Serious: Yes (Other)
  Sender: FDA-Public Use
  Company Number: BE-AMGEN-BELSP2012010914

PATIENT
  Sex: Female

DRUGS (3)
  1. CINACALCET HYDROCHLORIDE [Suspect]
     Dosage: 120 MG, UNK
  2. CINACALCET HYDROCHLORIDE [Suspect]
     Indication: HYPERPARATHYROIDISM SECONDARY
     Dosage: UNK MG, UNK
  3. CINACALCET HYDROCHLORIDE [Suspect]
     Dosage: 30 MG, UNK

REACTIONS (2)
  - RENAL TRANSPLANT [None]
  - LOW TURNOVER OSTEOPATHY [None]
